FAERS Safety Report 6467216-4 (Version None)
Quarter: 2009Q4

REPORT INFORMATION
  Report Type: 
  Country: None (occurrence: None)
  Receive Date: 20091125
  Receipt Date: 20091109
  Transmission Date: 20100525
  Serious: Yes (Hospitalization, Disabling)
  Sender: FDA-Public Use
  Company Number: DSA_42007_2009

PATIENT
  Sex: Female

DRUGS (9)
  1. CARDIZEM CD [Suspect]
     Indication: DRUG USE FOR UNKNOWN INDICATION
     Dosage: 360 MG QD ORAL
     Route: 048
  2. BUPROPION HCL [Suspect]
     Indication: DRUG USE FOR UNKNOWN INDICATION
     Dosage: 150 MG BID ORAL
     Route: 048
  3. SERTRALINE HCL [Concomitant]
  4. GEMGIBROZIL [Concomitant]
  5. LEVOTHYROXINE SODIUM [Concomitant]
  6. NOVOLOG [Concomitant]
  7. LANTUS [Concomitant]
  8. DEPAKOTE [Concomitant]
  9. PREVACID [Concomitant]

REACTIONS (4)
  - ABASIA [None]
  - ACTIVITIES OF DAILY LIVING IMPAIRED [None]
  - DEMENTIA [None]
  - MALAISE [None]
